FAERS Safety Report 18649490 (Version 1)
Quarter: 2020Q4

REPORT INFORMATION
  Report Type: Spontaneous
  Country: CN (occurrence: CN)
  Receive Date: 20201222
  Receipt Date: 20201222
  Transmission Date: 20210114
  Serious: Yes (Hospitalization)
  Sender: FDA-Public Use
  Company Number: CN-PFIZER INC-2020493351

PATIENT
  Age: 28 Year
  Sex: Female
  Weight: 51 kg

DRUGS (33)
  1. METHYLPREDNISOLONE. [Suspect]
     Active Substance: METHYLPREDNISOLONE
     Dosage: 40 MG, 1X/DAY
     Dates: start: 201810, end: 2018
  2. PREDNISONE ACETATE [Suspect]
     Active Substance: PREDNISONE ACETATE
     Indication: PEMPHIGUS
     Dosage: 50 MG, 1X/DAY
  3. CYCLOSPORIN [Concomitant]
     Active Substance: CYCLOSPORINE
     Indication: PEMPHIGUS
     Dosage: 200 MG, 2X/DAY
     Dates: start: 201810, end: 2018
  4. RITUXIMAB. [Concomitant]
     Active Substance: RITUXIMAB
     Indication: PEMPHIGUS
     Dosage: 600 MG, WEEKLY
     Route: 041
     Dates: start: 20190312, end: 20190312
  5. HUMAN IMMUNOGLOBULIN [Concomitant]
     Indication: PEMPHIGUS
     Dosage: 20 MG, 1X/DAY
     Route: 041
     Dates: start: 20190329, end: 20190403
  6. METHYLPREDNISOLONE SODIUM SUCCINATE. [Suspect]
     Active Substance: METHYLPREDNISOLONE SODIUM SUCCINATE
     Indication: PEMPHIGUS
     Dosage: 40 MG, 1X/DAY
     Route: 041
     Dates: start: 20190130, end: 20190201
  7. METHYLPREDNISOLONE SODIUM SUCCINATE. [Suspect]
     Active Substance: METHYLPREDNISOLONE SODIUM SUCCINATE
     Dosage: 40 MG, 1X/DAY
     Route: 041
     Dates: start: 20190312, end: 20190313
  8. PREDNISONE ACETATE [Suspect]
     Active Substance: PREDNISONE ACETATE
     Dosage: UNK
  9. FLUCONAZOLE. [Concomitant]
     Active Substance: FLUCONAZOLE
     Indication: PEMPHIGUS
     Dosage: 50 MG, 1X/DAY
     Route: 048
     Dates: start: 20200412, end: 20200420
  10. METHYLPREDNISOLONE. [Suspect]
     Active Substance: METHYLPREDNISOLONE
     Dosage: 40 MG, 1X/DAY
     Dates: start: 201812
  11. PREDNISONE ACETATE [Suspect]
     Active Substance: PREDNISONE ACETATE
     Dosage: 15 MG, 1X/DAY
     Route: 048
     Dates: start: 20190312, end: 20190313
  12. PREDNISONE ACETATE [Suspect]
     Active Substance: PREDNISONE ACETATE
     Dosage: 40 MG, 1X/DAY
     Route: 048
     Dates: start: 20190415, end: 20190420
  13. METHOTREXATE. [Concomitant]
     Active Substance: METHOTREXATE
     Indication: PEMPHIGUS
     Dosage: 30 MG, WEEKLY
  14. RITUXIMAB. [Concomitant]
     Active Substance: RITUXIMAB
     Dosage: 600 MG, WEEKLY
     Route: 041
     Dates: start: 20190404, end: 20190411
  15. MINOCYCLINE [Concomitant]
     Active Substance: MINOCYCLINE HYDROCHLORIDE
     Indication: PEMPHIGUS
     Dosage: 50 MG, 2X/DAY
     Route: 048
     Dates: start: 20190323, end: 20190327
  16. PREDNISONE ACETATE [Suspect]
     Active Substance: PREDNISONE ACETATE
     Dosage: 70 MG, 1X/DAY
     Route: 048
     Dates: start: 20190314, end: 20190409
  17. CYCLOPHOSPHAMIDE. [Concomitant]
     Active Substance: CYCLOPHOSPHAMIDE
     Dosage: 600 MG, WEEKLY
     Route: 041
  18. MINOCYCLINE [Concomitant]
     Active Substance: MINOCYCLINE HYDROCHLORIDE
     Dosage: 100 MG, 2X/DAY
     Route: 048
     Dates: start: 20190328, end: 20190412
  19. PREDNISONE ACETATE [Suspect]
     Active Substance: PREDNISONE ACETATE
     Dosage: 45 MG, 1X/DAY
  20. PREDNISONE ACETATE [Suspect]
     Active Substance: PREDNISONE ACETATE
     Dosage: 55 MG, 1X/DAY
     Route: 048
     Dates: start: 20190410, end: 20190414
  21. CALCIUM CARBONATE/VITAMIN D3 [Concomitant]
     Active Substance: CALCIUM CARBONATE\CHOLECALCIFEROL
     Indication: PEMPHIGUS
     Dosage: 1.5 G, 1X/DAY
     Route: 048
     Dates: start: 20190306, end: 20190420
  22. POTASSIUM CHLORIDE. [Concomitant]
     Active Substance: POTASSIUM CHLORIDE
     Indication: PEMPHIGUS
     Dosage: 1 G, 2X/DAY
     Route: 048
     Dates: start: 20190306, end: 20190311
  23. PANTOPRAZOLE SODIUM. [Concomitant]
     Active Substance: PANTOPRAZOLE SODIUM
     Indication: PEMPHIGUS
     Dosage: 40 MG, 1X/DAY
     Route: 048
     Dates: start: 20190306, end: 20190420
  24. RITUXIMAB. [Concomitant]
     Active Substance: RITUXIMAB
     Dosage: 600 MG, WEEKLY
     Route: 041
     Dates: start: 20190327, end: 20190327
  25. ITRACONAZOLE. [Concomitant]
     Active Substance: ITRACONAZOLE
     Indication: PEMPHIGUS
     Dosage: 0.2 G, 1X/DAY
     Route: 048
     Dates: start: 20190404, end: 20190411
  26. METHYLPREDNISOLONE. [Suspect]
     Active Substance: METHYLPREDNISOLONE
     Indication: PEMPHIGUS
     Dosage: 60 MG, 1X/DAY
     Dates: start: 20181009, end: 201810
  27. METHYLPREDNISOLONE. [Suspect]
     Active Substance: METHYLPREDNISOLONE
     Dosage: 40 MG, WEEKLY
  28. METHYLPREDNISOLONE SODIUM SUCCINATE. [Suspect]
     Active Substance: METHYLPREDNISOLONE SODIUM SUCCINATE
     Dosage: 80 MG, 1X/DAY
     Route: 041
     Dates: start: 20190202, end: 20190206
  29. HUMAN IMMUNOGLOBULIN [Concomitant]
     Dosage: 5 MG, 1X/DAY
     Route: 041
     Dates: start: 20190410, end: 20190410
  30. ALENDRONATE SODIUM/COLECALCIFEROL [Concomitant]
     Active Substance: ALENDRONATE SODIUM\CHOLECALCIFEROL
     Indication: PEMPHIGUS
     Dosage: 70 MG, WEEKLY
     Route: 048
     Dates: start: 20190408, end: 20190420
  31. PREDNISONE ACETATE [Suspect]
     Active Substance: PREDNISONE ACETATE
     Dosage: 70 MG, 1X/DAY
     Route: 048
     Dates: start: 20190306, end: 20190311
  32. CYCLOSPORIN [Concomitant]
     Active Substance: CYCLOSPORINE
     Dosage: 200 MG, 2X/DAY
     Dates: start: 201812
  33. RITUXIMAB. [Concomitant]
     Active Substance: RITUXIMAB
     Dosage: 600 MG, WEEKLY
     Route: 041
     Dates: start: 20190320, end: 20190320

REACTIONS (2)
  - Blister [Unknown]
  - Blood potassium decreased [Unknown]
